FAERS Safety Report 24624204 (Version 1)
Quarter: 2024Q4

REPORT INFORMATION
  Report Type: Spontaneous
  Country: AU (occurrence: AU)
  Receive Date: 20241115
  Receipt Date: 20241115
  Transmission Date: 20250115
  Serious: Yes (Other)
  Sender: MYLAN
  Company Number: AU-MYLANLABS-2024M1101864

PATIENT
  Age: 85 Year
  Sex: Male

DRUGS (5)
  1. PREDNISOLONE [Suspect]
     Active Substance: PREDNISOLONE
     Indication: Chronic actinic dermatitis
     Dosage: UNK
     Route: 065
  2. METHOTREXATE [Suspect]
     Active Substance: METHOTREXATE
     Indication: Chronic actinic dermatitis
     Dosage: 10 MILLIGRAM, QW
     Route: 065
  3. MYCOPHENOLATE MOFETIL [Suspect]
     Active Substance: MYCOPHENOLATE MOFETIL
     Indication: Chronic actinic dermatitis
     Dosage: 1 GRAM, BID
     Route: 065
  4. AZATHIOPRINE [Suspect]
     Active Substance: AZATHIOPRINE
     Indication: Chronic actinic dermatitis
     Dosage: 100 MILLIGRAM, QD
     Route: 065
  5. BETAMETHASONE DIPROPIONATE [Suspect]
     Active Substance: BETAMETHASONE DIPROPIONATE
     Indication: Chronic actinic dermatitis
     Dosage: UNK
     Route: 061

REACTIONS (2)
  - Hepatotoxicity [Unknown]
  - Drug ineffective [Unknown]
